FAERS Safety Report 5701011-6 (Version None)
Quarter: 2008Q2

REPORT INFORMATION
  Report Type: 
  Country: None (occurrence: None)
  Receive Date: 20080410
  Receipt Date: 20080403
  Transmission Date: 20081010
  Serious: Yes (Other)
  Sender: FDA-Public Use
  Company Number: US-ASTRAZENECA-2008UW06827

PATIENT
  Age: 43 Year
  Sex: Female

DRUGS (1)
  1. SYMBICORT [Suspect]
     Dosage: 80/4.5 UG TWO INHALATIONS
     Route: 055

REACTIONS (8)
  - DIZZINESS [None]
  - DYSPNOEA [None]
  - FEELING JITTERY [None]
  - HYPOAESTHESIA FACIAL [None]
  - HYPOAESTHESIA ORAL [None]
  - NERVOUSNESS [None]
  - THROAT TIGHTNESS [None]
  - TREMOR [None]
